FAERS Safety Report 9702212 (Version 1)
Quarter: 2013Q4

REPORT INFORMATION
  Report Type: Spontaneous
  Country: SK (occurrence: SK)
  Receive Date: 20131121
  Receipt Date: 20131121
  Transmission Date: 20140711
  Serious: Yes (Life-Threatening, Hospitalization)
  Sender: FDA-Public Use
  Company Number: PHHY2013SK133008

PATIENT
  Age: 47 Year
  Sex: Male

DRUGS (1)
  1. LEPONEX [Suspect]
     Dosage: UNK
     Route: 048
     Dates: start: 20131118

REACTIONS (6)
  - Cyanosis [Unknown]
  - Coma [Unknown]
  - Dyspnoea [Unknown]
  - Altered state of consciousness [Unknown]
  - Hypotension [Unknown]
  - Overdose [Unknown]
